FAERS Safety Report 7748962-9 (Version None)
Quarter: 2011Q3

REPORT INFORMATION
  Report Type: 
  Country: None (occurrence: None)
  Receive Date: 20110909
  Receipt Date: 20110824
  Transmission Date: 20111222
  Serious: Yes (Hospitalization)
  Sender: FDA-Public Use
  Company Number: GGEL20110800790

PATIENT
  Age: 65 Year
  Sex: Male

DRUGS (8)
  1. OMEPRAZOLE [Concomitant]
  2. TRAMADOL HYDROCHLORIDE (TRAMADOL) (TRAMADOL) [Concomitant]
  3. PARACETAMOL (ACETAMINOPHEN) (ACETAMINOPHEN) [Concomitant]
  4. TOPIRAMATE [Suspect]
     Indication: HEADACHE
     Dosage: 100 MILLIGRAM, 2 IN 1 D, ORAL USE
     Route: 048
     Dates: start: 20100701, end: 20110709
  5. NOTRIPTYLINE HYDROCHLORIDE (NOTRIPTYLINE) (NOTRIPTYLINE) [Concomitant]
  6. RIZATRIPTAN (RIZATRIPTAN) (RIZATRIPTAN) [Concomitant]
  7. ERYTHROMYCIN [Suspect]
     Indication: OROPHARYNGEAL PAIN
     Dosage: 200 MILLIGRAM, 4 IN 1 D, ORAL USE
     Route: 048
     Dates: start: 20110704, end: 20110708
  8. SALBUTAMOL (SALBUTAMOL) (SALBUTAMOL) [Concomitant]

REACTIONS (4)
  - MYASTHENIC SYNDROME [None]
  - DYSPHAGIA [None]
  - SPEECH DISORDER [None]
  - DYSPNOEA [None]
